FAERS Safety Report 15322382 (Version 1)
Quarter: 2018Q3

REPORT INFORMATION
  Report Type: Spontaneous
  Country: ES (occurrence: ES)
  Receive Date: 20180827
  Receipt Date: 20180827
  Transmission Date: 20181010
  Serious: Yes (Other)
  Sender: FDA-Public Use
  Company Number: PHHY2018ES083016

PATIENT
  Age: 44 Year
  Sex: Male

DRUGS (1)
  1. COSENTYX [Suspect]
     Active Substance: SECUKINUMAB
     Indication: ARTHRITIS REACTIVE
     Dosage: 150 MG, QMO
     Route: 058
     Dates: start: 20171213, end: 20180201

REACTIONS (1)
  - Tooth infection [Recovered/Resolved with Sequelae]

NARRATIVE: CASE EVENT DATE: 20180309
